FAERS Safety Report 4634771-6 (Version None)
Quarter: 2005Q2

REPORT INFORMATION
  Report Type: 
  Country: None (occurrence: None)
  Receive Date: 20050412
  Receipt Date: 20050401
  Transmission Date: 20051028
  Serious: Yes (Other)
  Sender: FDA-Public Use
  Company Number: 163-20785-05040150

PATIENT
  Sex: 0

DRUGS (1)
  1. THALOMID [Suspect]
     Indication: CHRONIC LYMPHOCYTIC LEUKAEMIA
     Dosage: 200MG QD DAYS 1-14, INCREASING BY 200MG Q 2 WKS UP TO 1000MG
     Dates: start: 20010118

REACTIONS (11)
  - ABDOMINAL PAIN [None]
  - ASTHENIA [None]
  - BACK PAIN [None]
  - BLOOD ALKALINE PHOSPHATASE ABNORMAL [None]
  - CONSTIPATION [None]
  - FATIGUE [None]
  - HAEMOGLOBIN ABNORMAL [None]
  - LETHARGY [None]
  - MALAISE [None]
  - MUSCULOSKELETAL DISORDER [None]
  - TUMOUR FLARE [None]
